FAERS Safety Report 4860209-X (Version None)
Quarter: 2005Q4

REPORT INFORMATION
  Report Type: 
  Country: None (occurrence: None)
  Receive Date: 20051219
  Receipt Date: 20051116
  Transmission Date: 20060501
  Serious: Yes (Life-Threatening, Hospitalization, Other)
  Sender: FDA-Public Use
  Company Number: 2005AP06013

PATIENT
  Age: 27818 Day
  Sex: Male

DRUGS (9)
  1. CASODEX [Suspect]
     Indication: PROSTATE CANCER
     Route: 048
     Dates: start: 20050905, end: 20051101
  2. LEUPLIN [Suspect]
     Indication: PROSTATE CANCER
     Route: 058
     Dates: start: 20050920, end: 20051018
  3. CRAVIT [Suspect]
     Indication: PROSTATITIS
     Route: 048
     Dates: start: 20050920, end: 20050925
  4. CLINORIL [Suspect]
     Indication: PROSTATITIS
     Route: 048
     Dates: start: 20050920, end: 20050925
  5. CEFAZOLIN [Concomitant]
     Indication: PROSTATITIS
     Route: 042
     Dates: start: 20050910, end: 20050911
  6. VOLTAREN [Concomitant]
     Indication: PYREXIA
     Route: 054
     Dates: start: 20050910
  7. MUCOSTA [Concomitant]
     Route: 048
     Dates: start: 20050920, end: 20050925
  8. SENNOSIDE [Concomitant]
     Indication: CONSTIPATION
     Route: 048
     Dates: start: 20051018, end: 20051102
  9. MAGMITT [Concomitant]
     Indication: CONSTIPATION
     Route: 048
     Dates: start: 20051101, end: 20051107

REACTIONS (5)
  - CONSTIPATION [None]
  - GASTRIC ULCER [None]
  - HEPATIC FAILURE [None]
  - PROSTATITIS [None]
  - RESPIRATORY FAILURE [None]
